FAERS Safety Report 7795819-3 (Version None)
Quarter: 2011Q4

REPORT INFORMATION
  Report Type: 
  Country: None (occurrence: None)
  Receive Date: 20111004
  Receipt Date: 20110926
  Transmission Date: 20120403
  Serious: Yes (Hospitalization)
  Sender: FDA-Public Use
  Company Number: JP-ABBOTT-11P-087-0851060-00

PATIENT
  Sex: Male

DRUGS (10)
  1. URIEF [Concomitant]
     Indication: PRODUCT USED FOR UNKNOWN INDICATION
     Route: 048
  2. BISOPROLOL FUMARATE [Concomitant]
     Indication: PULSE ABNORMAL
     Route: 048
  3. ALFAROL [Concomitant]
     Indication: PRODUCT USED FOR UNKNOWN INDICATION
     Route: 048
  4. LASIX [Concomitant]
     Indication: PRODUCT USED FOR UNKNOWN INDICATION
     Route: 048
     Dates: end: 20100701
  5. LASIX [Concomitant]
     Route: 048
     Dates: start: 20100701
  6. WARFARIN SODIUM [Concomitant]
     Indication: THROMBOSIS PROPHYLAXIS
     Route: 048
  7. LEUPROLIDE ACETATE [Suspect]
     Indication: PROSTATE CANCER
     Route: 058
     Dates: start: 20090501, end: 20110803
  8. LIPITOR [Concomitant]
     Indication: DYSLIPIDAEMIA
     Route: 048
  9. LANSOPRAZOLE [Concomitant]
     Route: 048
  10. BIO-THREE [Concomitant]
     Route: 048

REACTIONS (2)
  - OEDEMA PERIPHERAL [None]
  - CARDIAC FAILURE [None]
